FAERS Safety Report 17075596 (Version 9)
Quarter: 2021Q2

REPORT INFORMATION
  Report Type: Spontaneous
  Country: US (occurrence: US)
  Receive Date: 20191126
  Receipt Date: 20210426
  Transmission Date: 20210716
  Serious: No
  Sender: FDA-Public Use
  Company Number: US-PFIZER INC-2019507647

PATIENT
  Age: 39 Year
  Sex: Female

DRUGS (3)
  1. ESTRING [Suspect]
     Active Substance: ESTRADIOL
     Indication: MOOD SWINGS
     Dosage: 2 MG, EVERY 3 MONTHS
     Route: 067
     Dates: start: 2005
  2. ESTRING [Suspect]
     Active Substance: ESTRADIOL
     Indication: IRRITABILITY
     Dosage: 1 DF, EVERY 3 MONTHS (1 VAGINAL RING, EVERY 3 MONTHS (7.5 UG /24H, EVERY 90 DAYS DAILY FOR 90 DAYS)
     Route: 067
     Dates: start: 2018, end: 201910
  3. ESTRING [Suspect]
     Active Substance: ESTRADIOL
     Indication: VULVOVAGINAL DRYNESS

REACTIONS (7)
  - Feeling abnormal [Unknown]
  - Impatience [Unknown]
  - Sleep disorder [Unknown]
  - Hot flush [Unknown]
  - Malaise [Unknown]
  - Hyperhidrosis [Unknown]
  - Hormone level abnormal [Unknown]
